FAERS Safety Report 4865620-9 (Version None)
Quarter: 2005Q4

REPORT INFORMATION
  Report Type: 
  Country: None (occurrence: None)
  Receive Date: 20051220
  Receipt Date: 20051207
  Transmission Date: 20060501
  Serious: Yes (Disabling, Other)
  Sender: FDA-Public Use
  Company Number: 2005166760

PATIENT
  Age: 89 Year
  Sex: Male

DRUGS (4)
  1. NEURONTIN [Suspect]
     Indication: ILL-DEFINED DISORDER
  2. PLAVIX [Concomitant]
  3. GLUCOTROL [Concomitant]
  4. TRICOR [Concomitant]

REACTIONS (5)
  - ASTHENIA [None]
  - CARPAL TUNNEL SYNDROME [None]
  - DRUG INEFFECTIVE [None]
  - FEELING COLD [None]
  - PAIN IN EXTREMITY [None]
